FAERS Safety Report 14419121 (Version 2)
Quarter: 2018Q2

REPORT INFORMATION
  Report Type: Spontaneous
  Country: US (occurrence: US)
  Receive Date: 20180122
  Receipt Date: 20180417
  Transmission Date: 20180711
  Serious: No
  Sender: FDA-Public Use
  Company Number: US-NEUROCRINE BIOSCIENCES INC.-2017NBI01623

PATIENT
  Sex: Female

DRUGS (4)
  1. INGREZZA [Suspect]
     Active Substance: VALBENAZINE
     Indication: PRODUCT USED FOR UNKNOWN INDICATION
     Route: 048
     Dates: start: 2017, end: 2017
  2. OLANZAPINE. [Concomitant]
     Active Substance: OLANZAPINE
     Dosage: TAKE AT NIGHT
  3. OLANZAPINE. [Concomitant]
     Active Substance: OLANZAPINE
     Dosage: TAKE ONCE AT NIGHT
  4. INGREZZA [Suspect]
     Active Substance: VALBENAZINE
     Dosage: TAKE ONCE AT NIGHT
     Route: 048
     Dates: start: 2017

REACTIONS (2)
  - Heart rate increased [Recovered/Resolved]
  - Palpitations [Recovered/Resolved]

NARRATIVE: CASE EVENT DATE: 2017
